FAERS Safety Report 13026180 (Version 2)
Quarter: 2016Q4

REPORT INFORMATION
  Report Type: Spontaneous
  Country: US (occurrence: US)
  Receive Date: 20161214
  Receipt Date: 20161229
  Transmission Date: 20170207
  Serious: Yes (Death, Hospitalization, Other)
  Sender: FDA-Public Use
  Company Number: US-009507513-1612USA004976

PATIENT
  Sex: Male

DRUGS (1)
  1. KEYTRUDA [Suspect]
     Active Substance: PEMBROLIZUMAB
     Indication: PLASMA CELL MYELOMA
     Dosage: 168 MG, Q3W
     Dates: start: 201604, end: 201607

REACTIONS (4)
  - Death [Fatal]
  - Product use issue [Unknown]
  - Plasma cell myeloma [Unknown]
  - Adverse event [Unknown]

NARRATIVE: CASE EVENT DATE: 2016
